FAERS Safety Report 9752215 (Version 1)
Quarter: 2013Q4

REPORT INFORMATION
  Report Type: Spontaneous
  Country: US (occurrence: None)
  Receive Date: 20131211
  Receipt Date: 20131211
  Transmission Date: 20140711
  Serious: No
  Sender: FDA-Public Use
  Company Number: None

PATIENT
  Age: 15 Year
  Sex: Female

DRUGS (2)
  1. DEPAKOTE [Suspect]
     Indication: EPILEPSY
     Dosage: 2  BID  PO
     Route: 048
     Dates: start: 201101
  2. DEPAKOTE [Suspect]
     Indication: CEREBRAL PALSY
     Dosage: 2  BID  PO
     Route: 048
     Dates: start: 201101

REACTIONS (2)
  - Convulsion [None]
  - Product substitution issue [None]
